FAERS Safety Report 15965532 (Version 1)
Quarter: 2019Q1

REPORT INFORMATION
  Report Type: Spontaneous
  Country: US (occurrence: US)
  Receive Date: 20190123
  Receipt Date: 20190123
  Transmission Date: 20190418
  Serious: No
  Sender: FDA-Public Use
  Company Number: None

PATIENT
  Age: 64 Year
  Sex: Male
  Weight: 88 kg

DRUGS (1)
  1. REPATHA [Suspect]
     Active Substance: EVOLOCUMAB
     Indication: TYPE IIA HYPERLIPIDAEMIA
     Dosage: ?          OTHER FREQUENCY:2 WEEKS ;?
     Route: 058
     Dates: start: 201809

REACTIONS (5)
  - Headache [None]
  - Abdominal discomfort [None]
  - Weight decreased [None]
  - Pain [None]
  - Visual impairment [None]
